FAERS Safety Report 13251419 (Version 1)
Quarter: 2017Q1

REPORT INFORMATION
  Report Type: Spontaneous
  Country: FR (occurrence: FR)
  Receive Date: 20170220
  Receipt Date: 20170220
  Transmission Date: 20170428
  Serious: Yes (Hospitalization)
  Sender: FDA-Public Use
  Company Number: FR-AUROBINDO-AUR-APL-2017-29668

PATIENT
  Age: 81 Year
  Sex: Female

DRUGS (5)
  1. METFORMIN ARROW LAB FILM COATED TABLETS 500MG [Suspect]
     Active Substance: METFORMIN HYDROCHLORIDE
     Indication: TYPE 2 DIABETES MELLITUS
     Dosage: 500 MG, 3 TIMES A DAY
     Route: 048
  2. INNOHEP [Suspect]
     Active Substance: TINZAPARIN SODIUM
     Indication: ARRHYTHMIA
     Dosage: 1 DF, DAILY
     Route: 058
     Dates: start: 20161018
  3. CARBOPLATINE KABI [Suspect]
     Active Substance: CARBOPLATIN
     Indication: SQUAMOUS CELL CARCINOMA
     Dosage: 310 MG, PER CYCLE
     Route: 041
     Dates: start: 20161018, end: 20161202
  4. FLUOROURACILE ACCORD [Suspect]
     Active Substance: FLUOROURACIL
     Indication: SQUAMOUS CELL CARCINOMA
     Dosage: 5600 MG, PER CYCLE
     Route: 041
     Dates: start: 20161018, end: 20161202
  5. ERBITUX [Suspect]
     Active Substance: CETUXIMAB
     Indication: SQUAMOUS CELL CARCINOMA
     Dosage: 440 MG, PER CYCLE
     Route: 041
     Dates: start: 20161018, end: 20161217

REACTIONS (1)
  - Thrombocytopenia [Not Recovered/Not Resolved]

NARRATIVE: CASE EVENT DATE: 20161202
